FAERS Safety Report 11504040 (Version 5)
Quarter: 2015Q4

REPORT INFORMATION
  Report Type: Report from Study
  Country: JP (occurrence: JP)
  Receive Date: 20150914
  Receipt Date: 20151013
  Transmission Date: 20160304
  Serious: Yes (Death, Hospitalization)
  Sender: FDA-Public Use
  Company Number: PHJP2015JP014314

PATIENT
  Age: 51 Year
  Sex: Male
  Weight: 60 kg

DRUGS (16)
  1. LDK378 [Suspect]
     Active Substance: CERITINIB
     Dosage: 450 MG, UNK
     Route: 048
     Dates: start: 20141225, end: 20150107
  2. SULFAMETHOXAZOLE AND TRIMETHOPRIM [Concomitant]
     Active Substance: SULFAMETHOXAZOLE\TRIMETHOPRIM
     Indication: INFECTION PROPHYLAXIS
     Dosage: 1 DF, QD
     Route: 048
     Dates: start: 20140522, end: 20150924
  3. DOCETAXEL. [Suspect]
     Active Substance: DOCETAXEL
     Indication: NON-SMALL CELL LUNG CANCER
     Dosage: 115 MG, UNK
     Route: 065
     Dates: start: 20131113, end: 20131204
  4. LAMISIL 1 [Concomitant]
     Indication: RASH
     Dosage: UNK
     Route: 065
     Dates: start: 20140815
  5. OXINORM [Concomitant]
     Active Substance: OXYCODONE HYDROCHLORIDE
     Indication: BACK PAIN
     Dosage: 2.5 MG, PRN
     Route: 048
     Dates: start: 20150212
  6. TRAMCET [Concomitant]
     Active Substance: ACETAMINOPHEN\TRAMADOL
     Indication: BACK PAIN
     Dosage: 1 DF, TID
     Route: 048
     Dates: start: 20141115, end: 20150924
  7. LDK378 [Suspect]
     Active Substance: CERITINIB
     Dosage: UNK
     Route: 048
     Dates: start: 20150328, end: 20150924
  8. LDK378 [Suspect]
     Active Substance: CERITINIB
     Indication: NON-SMALL CELL LUNG CANCER
     Dosage: 750 MG, QD
     Route: 048
     Dates: start: 20140107, end: 20140306
  9. DEPAKENE [Concomitant]
     Active Substance: VALPROIC ACID
     Indication: CONVULSION PROPHYLAXIS
     Dosage: 400 MG, TID
     Route: 048
     Dates: start: 20140815, end: 20150924
  10. LDK378 [Suspect]
     Active Substance: CERITINIB
     Dosage: UNK
     Route: 048
     Dates: start: 20150122, end: 20150325
  11. DECADRON [Concomitant]
     Active Substance: DEXAMETHASONE
     Indication: PROPHYLAXIS
     Dosage: 1.5 MG, QD
     Route: 048
     Dates: start: 20140520, end: 20150924
  12. MAGMITT [Concomitant]
     Active Substance: MAGNESIUM OXIDE
     Indication: CONSTIPATION PROPHYLAXIS
     Dosage: 330 MG, TID
     Route: 048
     Dates: start: 20140917
  13. EXCEGRAN [Concomitant]
     Active Substance: ZONISAMIDE
     Indication: CONVULSION PROPHYLAXIS
     Dosage: 100 MG, TID
     Route: 048
     Dates: start: 20140512, end: 20150924
  14. NEXIUM 1-2-3 [Concomitant]
     Active Substance: AMOXICILLIN\CLARITHROMYCIN\ESOMEPRAZOLE
     Indication: PROPHYLAXIS AGAINST GASTROINTESTINAL ULCER
     Dosage: 20 MG, QD
     Route: 048
     Dates: start: 20130313, end: 20150924
  15. LDK378 [Suspect]
     Active Substance: CERITINIB
     Dosage: 600 MG, QD
     Route: 048
     Dates: start: 20140417, end: 20140511
  16. BESOFTEN [Concomitant]
     Active Substance: SODIUM ALGINATE
     Indication: DERMATITIS
     Dosage: UNK
     Route: 065
     Dates: start: 20140827

REACTIONS (4)
  - Seizure [Recovered/Resolved]
  - Seizure [Recovered/Resolved]
  - Seizure [Not Recovered/Not Resolved]
  - Respiratory failure [Fatal]

NARRATIVE: CASE EVENT DATE: 20150816
